FAERS Safety Report 6108409-5 (Version None)
Quarter: 2009Q1

REPORT INFORMATION
  Report Type: 
  Country: None (occurrence: None)
  Receive Date: 20090309
  Receipt Date: 20090309
  Transmission Date: 20090719
  Serious: Yes (Hospitalization)
  Sender: FDA-Public Use
  Company Number: PHHO2000IT09743

PATIENT
  Sex: Male
  Weight: 60 kg

DRUGS (4)
  1. NEORAL [Suspect]
     Indication: LIVER TRANSPLANT
     Dates: start: 19990914, end: 19990915
  2. SIMULECT [Suspect]
     Indication: LIVER TRANSPLANT
     Dosage: 20 MG, DAY 0
     Route: 042
     Dates: start: 20000910, end: 20000910
  3. SIMULECT [Suspect]
     Dosage: 20 MG, DAY 4
     Route: 042
     Dates: start: 20000914, end: 20000914
  4. ACTIVE CONTROL A.C. [Suspect]

REACTIONS (4)
  - COGNITIVE DISORDER [None]
  - DELUSION [None]
  - MENTAL DISORDER [None]
  - SLEEP DISORDER [None]
